FAERS Safety Report 5657277-4 (Version None)
Quarter: 2008Q1

REPORT INFORMATION
  Report Type: 
  Country: None (occurrence: None)
  Receive Date: 20080307
  Receipt Date: 20080307
  Transmission Date: 20080703
  Serious: Yes (Hospitalization)
  Sender: FDA-Public Use
  Company Number: None

PATIENT
  Sex: Male
  Weight: 86.9 kg

DRUGS (2)
  1. FLUOROURACIL [Suspect]
     Dosage: 12600 MG
     Dates: end: 20070607
  2. ELOXATIN [Suspect]
     Dosage: 500 MG
     Dates: end: 20070529

REACTIONS (8)
  - COUGH [None]
  - DEHYDRATION [None]
  - DIARRHOEA [None]
  - HYPERSENSITIVITY [None]
  - INCORRECT DOSE ADMINISTERED [None]
  - ORAL INTAKE REDUCED [None]
  - ORTHOSTATIC HYPOTENSION [None]
  - THROAT IRRITATION [None]
